FAERS Safety Report 15448336 (Version 1)
Quarter: 2018Q3

REPORT INFORMATION
  Report Type: Spontaneous
  Country: CH (occurrence: CH)
  Receive Date: 20180929
  Receipt Date: 20180929
  Transmission Date: 20181010
  Serious: Yes (Other)
  Sender: FDA-Public Use
  Company Number: CH-ACCORD-072789

PATIENT
  Age: 13 Year
  Sex: Male

DRUGS (1)
  1. ZOLEDRONIC ACID [Suspect]
     Active Substance: ZOLEDRONIC ACID
     Indication: DUCHENNE MUSCULAR DYSTROPHY
     Dosage: CORRESPONDING TO HALF?THE STANDARD DOSE
     Route: 042

REACTIONS (2)
  - Myoglobinuria [Recovered/Resolved]
  - Rhabdomyolysis [Unknown]
